FAERS Safety Report 8114514-4 (Version None)
Quarter: 2012Q1

REPORT INFORMATION
  Report Type: 
  Country: None (occurrence: None)
  Receive Date: 20120206
  Receipt Date: 20120131
  Transmission Date: 20120608
  Serious: No
  Sender: FDA-Public Use
  Company Number: US-PFIZER INC-2012026019

PATIENT
  Sex: Male

DRUGS (1)
  1. SUTENT [Suspect]
     Dosage: 37.5 MG, (25MG AND 12.5MG)
     Route: 048

REACTIONS (2)
  - DISEASE PROGRESSION [None]
  - NEOPLASM MALIGNANT [None]
